FAERS Safety Report 16561558 (Version 1)
Quarter: 2019Q3

REPORT INFORMATION
  Report Type: Spontaneous
  Country: LT (occurrence: LT)
  Receive Date: 20190711
  Receipt Date: 20190711
  Transmission Date: 20191004
  Serious: Yes (Hospitalization)
  Sender: FDA-Public Use
  Company Number: LT-BAUSCH-BL-2019-019457

PATIENT
  Age: 21 Year
  Sex: Female

DRUGS (1)
  1. PREDNISOLONE. [Suspect]
     Active Substance: PREDNISOLONE
     Indication: CHRONIC SINUSITIS
     Route: 065

REACTIONS (5)
  - Cushing^s syndrome [Unknown]
  - Intentional product misuse [Unknown]
  - Hypertension [Unknown]
  - Prescription drug used without a prescription [Unknown]
  - Drug abuse [Recovering/Resolving]
